FAERS Safety Report 24085402 (Version 1)
Quarter: 2024Q3

REPORT INFORMATION
  Report Type: Spontaneous
  Country: US (occurrence: US)
  Receive Date: 20240712
  Receipt Date: 20240712
  Transmission Date: 20241017
  Serious: No
  Sender: AMGEN
  Company Number: US-AMGEN-USASP2024132898

PATIENT
  Age: 73 Year
  Sex: Male

DRUGS (3)
  1. PREDNISONE [Suspect]
     Active Substance: PREDNISONE
     Indication: Opportunistic infection prophylaxis
     Dosage: UNK
     Route: 065
  2. SULFAMETHOXAZOLE [Concomitant]
     Active Substance: SULFAMETHOXAZOLE
     Indication: Opportunistic infection prophylaxis
     Dosage: UNK
     Route: 065
  3. TRIMETHOPRIM [Concomitant]
     Active Substance: TRIMETHOPRIM
     Indication: Opportunistic infection prophylaxis
     Dosage: UNK

REACTIONS (1)
  - Off label use [Unknown]
